FAERS Safety Report 6146936-5 (Version None)
Quarter: 2009Q2

REPORT INFORMATION
  Report Type: 
  Country: None (occurrence: None)
  Receive Date: 20090407
  Receipt Date: 20090406
  Transmission Date: 20091009
  Serious: Yes (Death, Life-Threatening)
  Sender: FDA-Public Use
  Company Number: VN-B.I. PHARMACEUTICALS,INC./RIDGEFIELD-2009-SG-00151SG

PATIENT
  Age: 56 Year
  Sex: Male

DRUGS (3)
  1. MOBIC [Suspect]
     Dosage: 15MG
     Route: 030
     Dates: start: 20090331
  2. CURAM [Suspect]
     Dosage: 1.2G
     Route: 042
     Dates: start: 20090331
  3. QUAMATEL (FAMOTIDINE) [Concomitant]
     Dosage: 20MG
     Route: 042
     Dates: start: 20090331

REACTIONS (4)
  - ANAPHYLACTIC REACTION [None]
  - COMA [None]
  - DYSKINESIA [None]
  - FATIGUE [None]
